FAERS Safety Report 4704625-5 (Version None)
Quarter: 2005Q2

REPORT INFORMATION
  Report Type: 
  Country: None (occurrence: None)
  Receive Date: 20050630
  Receipt Date: 20050620
  Transmission Date: 20051028
  Serious: Yes (Hospitalization)
  Sender: FDA-Public Use
  Company Number: FR-MERCK-0506FRA00095

PATIENT
  Age: 65 Year
  Sex: Male

DRUGS (9)
  1. CRIXIVAN [Suspect]
     Indication: HIV INFECTION
     Route: 048
     Dates: start: 19970101, end: 20000101
  2. ZIDOVUDINE [Concomitant]
     Indication: HIV INFECTION
     Route: 048
     Dates: start: 19970101, end: 20000101
  3. ZALCITABINE [Concomitant]
     Indication: HIV INFECTION
     Route: 048
     Dates: start: 19970101, end: 20000101
  4. MELPHALAN [Concomitant]
     Indication: MULTIPLE MYELOMA
     Route: 048
     Dates: start: 19980601
  5. CLODRONIC ACID [Concomitant]
     Indication: MULTIPLE MYELOMA
     Route: 048
     Dates: start: 19980601
  6. TRAMADOL HYDROCHLORIDE [Concomitant]
     Indication: MULTIPLE MYELOMA
     Route: 048
     Dates: start: 19980601
  7. PREDNISONE [Concomitant]
     Indication: MULTIPLE MYELOMA
     Route: 048
     Dates: start: 19980601
  8. THALIDOMIDE [Concomitant]
     Indication: MULTIPLE MYELOMA
     Route: 048
     Dates: start: 20010301
  9. THALIDOMIDE [Concomitant]
     Route: 048
     Dates: end: 20020301

REACTIONS (2)
  - LIPODYSTROPHY ACQUIRED [None]
  - MULTIPLE MYELOMA [None]
